FAERS Safety Report 4358378-3 (Version None)
Quarter: 2004Q2

REPORT INFORMATION
  Report Type: 
  Country: None (occurrence: None)
  Receive Date: 20040511
  Receipt Date: 20040428
  Transmission Date: 20050107
  Serious: No
  Sender: FDA-Public Use
  Company Number: 04P-008-0259081-00

PATIENT
  Sex: Female

DRUGS (3)
  1. DEPAKENE [Suspect]
     Indication: EPILEPSY
     Dosage: 2500 MG
  2. LAMOTRIGINE [Suspect]
     Indication: EPILEPSY
     Dosage: 150 MG
  3. FOLATE SODIUM [Concomitant]

REACTIONS (3)
  - ABORTION [None]
  - DRUG EXPOSURE DURING PREGNANCY [None]
  - PREGNANCY [None]
